FAERS Safety Report 7296669-7 (Version None)
Quarter: 2011Q1

REPORT INFORMATION
  Report Type: 
  Country: None (occurrence: None)
  Receive Date: 20110216
  Receipt Date: 20110214
  Transmission Date: 20110831
  Serious: Yes (Death)
  Sender: FDA-Public Use
  Company Number: PHFR2011GB01293

PATIENT
  Sex: Male

DRUGS (2)
  1. ACLASTA [Suspect]
     Dosage: UNK
  2. INFLIXIMAB [Suspect]
     Indication: CROHN'S DISEASE
     Dosage: UNK DF, UNK

REACTIONS (2)
  - RESPIRATORY FAILURE [None]
  - INFLUENZA LIKE ILLNESS [None]
